FAERS Safety Report 17249191 (Version 1)
Quarter: 2020Q1

REPORT INFORMATION
  Report Type: Spontaneous
  Country: US (occurrence: US)
  Receive Date: 20200108
  Receipt Date: 20200108
  Transmission Date: 20200409
  Serious: Yes (Hospitalization, Other)
  Sender: FDA-Public Use
  Company Number: US-009507513-2001USA001710

PATIENT
  Sex: Female

DRUGS (24)
  1. DULOXETINE HYDROCHLORIDE. [Concomitant]
     Active Substance: DULOXETINE HYDROCHLORIDE
  2. VITAMIN D (UNSPECIFIED) [Concomitant]
     Active Substance: VITAMIN D NOS
  3. ALPRAZOLAM. [Concomitant]
     Active Substance: ALPRAZOLAM
  4. MONTELUKAST SODIUM. [Suspect]
     Active Substance: MONTELUKAST SODIUM
     Dosage: UNK, ONCE
     Route: 048
     Dates: start: 2017, end: 2017
  5. ASPIRIN. [Concomitant]
     Active Substance: ASPIRIN
  6. CLOPIDOGREL [Concomitant]
     Active Substance: CLOPIDOGREL BISULFATE
  7. CLONIDINE. [Concomitant]
     Active Substance: CLONIDINE
     Dosage: FORMULATION PATCH
  8. NITROGLYCERIN. [Concomitant]
     Active Substance: NITROGLYCERIN
  9. IRON (UNSPECIFIED) [Concomitant]
     Active Substance: IRON
  10. LABETALOL [Concomitant]
     Active Substance: LABETALOL\LABETALOL HYDROCHLORIDE
  11. FLUTICASONE. [Concomitant]
     Active Substance: FLUTICASONE
  12. LOSARTAN. [Concomitant]
     Active Substance: LOSARTAN
  13. ISOSORBIDE. [Concomitant]
     Active Substance: ISOSORBIDE
  14. VITAMIN B (UNSPECIFIED) [Concomitant]
     Active Substance: VITAMIN B
  15. ATORVASTATIN [Concomitant]
     Active Substance: ATORVASTATIN
  16. MAGNESIUM (UNSPECIFIED) [Concomitant]
     Active Substance: MAGNESIUM
  17. AIMOVIG [Concomitant]
     Active Substance: ERENUMAB-AOOE
  18. PROAIR HFA [Concomitant]
     Active Substance: ALBUTEROL SULFATE
  19. JANUMET [Suspect]
     Active Substance: METFORMIN HYDROCHLORIDE\SITAGLIPTIN PHOSPHATE
     Indication: DIABETES MELLITUS
     Dosage: 1 TABLET (50/500) TWICE A DAY
     Route: 048
     Dates: start: 2009
  20. HYDRALAZINE [Concomitant]
     Active Substance: HYDRALAZINE HYDROCHLORIDE
  21. TOPIRAMATE. [Concomitant]
     Active Substance: TOPIRAMATE
  22. LEVEMIR [Concomitant]
     Active Substance: INSULIN DETEMIR
  23. SINGULAIR [Suspect]
     Active Substance: MONTELUKAST SODIUM
     Indication: ASTHMA
     Dosage: 1 TABLET (10 MILLIGRAM) A DAY
     Route: 048
     Dates: start: 2009
  24. FUROSEMIDE. [Concomitant]
     Active Substance: FUROSEMIDE

REACTIONS (6)
  - Adverse event [Recovered/Resolved]
  - Anaphylactic reaction [Recovered/Resolved]
  - Coronary artery bypass [Recovered/Resolved]
  - Cerebrovascular accident [Recovered/Resolved]
  - Acute respiratory distress syndrome [Recovered/Resolved]
  - Mastectomy [Recovered/Resolved]

NARRATIVE: CASE EVENT DATE: 2017
